FAERS Safety Report 22246508 (Version 1)
Quarter: 2023Q2

REPORT INFORMATION
  Report Type: Report from Study
  Country: NL (occurrence: NL)
  Receive Date: 20230424
  Receipt Date: 20230424
  Transmission Date: 20230722
  Serious: Yes (Death, Other)
  Sender: FDA-Public Use
  Company Number: NL-ABBVIE-4738478

PATIENT
  Sex: Female

DRUGS (2)
  1. CARBIDOPA\LEVODOPA [Suspect]
     Active Substance: CARBIDOPA\LEVODOPA
     Indication: Parkinson^s disease
     Dosage: MD: 7.2ML CD: 1.7ML/H ED:1.0ML; DURATION TEXT: REMAINS AT 16 HOURS
     Route: 050
     Dates: end: 20230414
  2. CARBIDOPA\LEVODOPA [Suspect]
     Active Substance: CARBIDOPA\LEVODOPA
     Route: 050
     Dates: start: 20190328

REACTIONS (1)
  - Peritoneal carcinoma metastatic [Fatal]

NARRATIVE: CASE EVENT DATE: 20230414
